FAERS Safety Report 11496358 (Version 4)
Quarter: 2016Q1

REPORT INFORMATION
  Report Type: Spontaneous
  Country: DE (occurrence: DE)
  Receive Date: 20150911
  Receipt Date: 20160325
  Transmission Date: 20160525
  Serious: Yes (Death)
  Sender: FDA-Public Use
  Company Number: DE-CELGENE-DEU-2015090331

PATIENT
  Age: 54 Year
  Sex: Male
  Weight: 86 kg

DRUGS (25)
  1. AMIODARONE [Concomitant]
     Active Substance: AMIODARONE
     Indication: ATRIAL FIBRILLATION
     Route: 065
  2. AMIODARONE [Concomitant]
     Active Substance: AMIODARONE
     Indication: CARDIOMYOPATHY
  3. PALLADIN [Concomitant]
     Indication: PAIN
     Dosage: 10 MILLIGRAM
     Route: 065
  4. RITUXIMAB [Concomitant]
     Active Substance: RITUXIMAB
     Indication: DIFFUSE LARGE B-CELL LYMPHOMA
     Route: 065
     Dates: start: 2015, end: 2015
  5. REVLIMID [Suspect]
     Active Substance: LENALIDOMIDE
     Indication: DIFFUSE LARGE B-CELL LYMPHOMA
     Route: 048
     Dates: start: 201404, end: 201409
  6. REVLIMID [Suspect]
     Active Substance: LENALIDOMIDE
     Indication: OFF LABEL USE
     Route: 048
     Dates: start: 201411, end: 201503
  7. CARVEDILOL. [Concomitant]
     Active Substance: CARVEDILOL
     Indication: CARDIOMYOPATHY
  8. PREGABALIN. [Concomitant]
     Active Substance: PREGABALIN
     Indication: PAIN
     Dosage: 25 MILLIGRAM
     Route: 065
  9. TOREM [Concomitant]
     Active Substance: TORSEMIDE
     Indication: ATRIAL FIBRILLATION
     Dosage: 800 MILLIGRAM
     Route: 065
  10. TOREM [Concomitant]
     Active Substance: TORSEMIDE
     Indication: CARDIOMYOPATHY
  11. SPIRONOLACTONE. [Concomitant]
     Active Substance: SPIRONOLACTONE
     Indication: CARDIOMYOPATHY
  12. ALLOPURINOL. [Concomitant]
     Active Substance: ALLOPURINOL
     Indication: CARDIOMYOPATHY
  13. REVLIMID [Suspect]
     Active Substance: LENALIDOMIDE
     Route: 048
     Dates: start: 20150801, end: 20150803
  14. PROCORALAN [Concomitant]
     Active Substance: IVABRADINE
     Indication: ATRIAL FIBRILLATION
     Route: 065
  15. SPIRONOLACTONE. [Concomitant]
     Active Substance: SPIRONOLACTONE
     Indication: ATRIAL FIBRILLATION
     Dosage: 1500 MILLIGRAM
     Route: 065
  16. PALLADIN [Concomitant]
     Indication: CARDIOMYOPATHY
  17. APIXABAN [Concomitant]
     Active Substance: APIXABAN
     Indication: ATRIAL FIBRILLATION
     Dosage: 12.4 MILLIGRAM
     Route: 065
     Dates: end: 20150702
  18. ALLOPURINOL. [Concomitant]
     Active Substance: ALLOPURINOL
     Indication: PAIN
     Dosage: 7.5 MILLIGRAM
     Route: 065
  19. GEMZAR [Concomitant]
     Active Substance: GEMCITABINE HYDROCHLORIDE
     Indication: DIFFUSE LARGE B-CELL LYMPHOMA
     Route: 065
     Dates: start: 2015, end: 2015
  20. REVLIMID [Suspect]
     Active Substance: LENALIDOMIDE
     Dosage: 2.25 MILLIGRAM
     Route: 048
     Dates: start: 201404, end: 201505
  21. PROCORALAN [Concomitant]
     Active Substance: IVABRADINE
     Indication: CARDIOMYOPATHY
  22. APIXABAN [Concomitant]
     Active Substance: APIXABAN
     Indication: CARDIOMYOPATHY
  23. PREGABALIN. [Concomitant]
     Active Substance: PREGABALIN
     Indication: CARDIOMYOPATHY
  24. ACIC [Concomitant]
     Active Substance: ACYCLOVIR
     Indication: INFECTION PROPHYLAXIS
     Route: 065
  25. CARVEDILOL. [Concomitant]
     Active Substance: CARVEDILOL
     Indication: ATRIAL FIBRILLATION
     Route: 065

REACTIONS (4)
  - Thrombocytopenia [Unknown]
  - Diffuse large B-cell lymphoma [Fatal]
  - Cardiac failure [Fatal]
  - Pneumonia [Fatal]

NARRATIVE: CASE EVENT DATE: 201505
